FAERS Safety Report 6359001-9 (Version None)
Quarter: 2009Q3

REPORT INFORMATION
  Report Type: 
  Country: None (occurrence: None)
  Receive Date: 20090914
  Receipt Date: 20090831
  Transmission Date: 20100115
  Serious: Yes (Disabling)
  Sender: FDA-Public Use
  Company Number: S07-FRA-03414*01

PATIENT
  Age: 66 Year
  Sex: Male
  Weight: 84 kg

DRUGS (10)
  1. ESCITALOPRAM [Suspect]
     Indication: DEPRESSION
     Dosage: 5 MG (5 MG, 1 IN 1 D), ORAL
     Route: 048
     Dates: start: 20070706, end: 20070710
  2. ESCITALOPRAM [Suspect]
     Indication: PANIC ATTACK
     Dosage: 5 MG (5 MG, 1 IN 1 D), ORAL
     Route: 048
     Dates: start: 20070706, end: 20070710
  3. OXYCONTIN [Suspect]
     Indication: PAIN
     Dosage: 120 MG (60 MG, 2 IN 1 D), ORAL
     Route: 048
     Dates: start: 20070228
  4. FENTANYL [Suspect]
     Indication: PAIN
     Dosage: 800 MCG (200 MCG, 4 IN 1 D), NASAL
     Route: 045
     Dates: start: 20070201
  5. MORPHINE SULFATE [Suspect]
     Indication: PAIN
     Dosage: 60 TO 120 MG DAILY (30 MG), ORAL
     Route: 048
     Dates: start: 20070501
  6. TAXOTERE (DOCETAXEL) (DOCETAXEL) [Concomitant]
  7. ACETAMINOPHEN [Concomitant]
  8. PREDNISONE [Concomitant]
  9. RYTHMOL [Concomitant]
  10. VALSARTAN [Concomitant]

REACTIONS (6)
  - ABDOMINAL PAIN [None]
  - DRUG INTERACTION [None]
  - MYDRIASIS [None]
  - SEROTONIN SYNDROME [None]
  - VISUAL IMPAIRMENT [None]
  - WEIGHT DECREASED [None]
